FAERS Safety Report 14163521 (Version 1)
Quarter: 2017Q4

REPORT INFORMATION
  Report Type: Report from Study
  Country: IT (occurrence: IT)
  Receive Date: 20171107
  Receipt Date: 20171107
  Transmission Date: 20180321
  Serious: Yes (Hospitalization)
  Sender: FDA-Public Use
  Company Number: IT-EMD SERONO-8200007

PATIENT
  Age: 17 Year
  Sex: Male

DRUGS (1)
  1. SAIZEN [Suspect]
     Active Substance: SOMATROPIN
     Indication: GROWTH HORMONE DEFICIENCY
     Dosage: 12 MG (8 MG/ML)
     Route: 058
     Dates: start: 20161117

REACTIONS (1)
  - Epiphysiolysis [Recovered/Resolved]

NARRATIVE: CASE EVENT DATE: 20170505
